FAERS Safety Report 19449427 (Version 1)
Quarter: 2021Q2

REPORT INFORMATION
  Report Type: Spontaneous
  Country: DE (occurrence: DE)
  Receive Date: 20210622
  Receipt Date: 20210622
  Transmission Date: 20210717
  Serious: Yes (Other)
  Sender: FDA-Public Use
  Company Number: DE-BAUSCH-BL-2021-021569

PATIENT
  Age: 28 Year
  Sex: Female
  Weight: 60 kg

DRUGS (1)
  1. ALFASON [Suspect]
     Active Substance: HYDROCORTISONE BUTYRATE
     Indication: ECZEMA
     Dosage: AS NEEDED (AS REQUIRED) (12 YEARS AND 2 MONTHS)
     Route: 003
     Dates: start: 20090101, end: 20210326

REACTIONS (17)
  - Skin exfoliation [Not Recovered/Not Resolved]
  - Erythema [Not Recovered/Not Resolved]
  - Eczema weeping [Not Recovered/Not Resolved]
  - Pustule [Not Recovered/Not Resolved]
  - Steroid withdrawal syndrome [Not Recovered/Not Resolved]
  - Dermatitis [Not Recovered/Not Resolved]
  - Pruritus [Not Recovered/Not Resolved]
  - Food allergy [Not Recovered/Not Resolved]
  - Eschar [Not Recovered/Not Resolved]
  - Sensitive skin [Not Recovered/Not Resolved]
  - Fatigue [Recovering/Resolving]
  - Eczema [Not Recovered/Not Resolved]
  - Impaired healing [Not Recovered/Not Resolved]
  - Hyperhidrosis [Not Recovered/Not Resolved]
  - Feeling cold [Not Recovered/Not Resolved]
  - Tremor [Not Recovered/Not Resolved]
  - Apathy [Recovering/Resolving]

NARRATIVE: CASE EVENT DATE: 20210226
